FAERS Safety Report 8859929 (Version 2)
Quarter: 2013Q1

REPORT INFORMATION
  Report Type: Spontaneous
  Country: US (occurrence: US)
  Receive Date: 20121025
  Receipt Date: 20130212
  Transmission Date: 20140127
  Serious: Yes (Death, Hospitalization)
  Sender: FDA-Public Use
  Company Number: US-BAYER-2012-108968

PATIENT
  Age: 33 Year
  Sex: Female
  Weight: 85 kg

DRUGS (10)
  1. YAZ [Suspect]
     Indication: ACNE
     Dosage: 3-0.02 MG
     Dates: start: 20090311, end: 20091009
  2. CLARAVIS [Concomitant]
     Dosage: 40 MG, UNK
  3. PRENATAL VITAMINS [Concomitant]
  4. WELLBUTRIN [Concomitant]
     Route: 048
  5. LEXAPRO [Concomitant]
     Dosage: 20 MG, QD
     Route: 048
  6. BENZOYL PEROXIDE [Concomitant]
     Indication: ACNE
     Route: 061
  7. DUAC [Concomitant]
     Route: 061
  8. BACTRIM [Concomitant]
     Indication: ACNE
     Dosage: 800/160 MG
     Route: 048
  9. RETIN A [Concomitant]
     Indication: ACNE
     Route: 061
  10. FLUTICASONE PROPIONATE [Concomitant]
     Indication: MULTIPLE ALLERGIES
     Route: 045

REACTIONS (11)
  - Pulmonary embolism [Fatal]
  - Dyspnoea [Fatal]
  - Dizziness [Fatal]
  - Feeling hot [Fatal]
  - Deep vein thrombosis [None]
  - Pain [None]
  - Acute respiratory failure [None]
  - Loss of consciousness [None]
  - Emotional distress [None]
  - Anxiety [None]
  - Fear of death [None]
